FAERS Safety Report 14307548 (Version 1)
Quarter: 2017Q4

REPORT INFORMATION
  Report Type: Spontaneous
  Country: US (occurrence: US)
  Receive Date: 20171219
  Receipt Date: 20171219
  Transmission Date: 20180321
  Serious: Yes (Life-Threatening, Hospitalization, Disabling, Other)
  Sender: FDA-Public Use
  Company Number: None

PATIENT
  Age: 61 Year
  Sex: Male
  Weight: 65.25 kg

DRUGS (11)
  1. CARVEDILOL. [Concomitant]
     Active Substance: CARVEDILOL
  2. ATORVASTATIN CALCIUM. [Concomitant]
     Active Substance: ATORVASTATIN CALCIUM
  3. CLOPIDOGREL BISULFAT [Concomitant]
  4. CITALOPRAM HBR 20 MG [Suspect]
     Active Substance: CITALOPRAM HYDROBROMIDE
     Indication: CARDIAC DISORDER
     Dosage: ?          QUANTITY:1 TABLET(S);?
     Route: 048
     Dates: start: 20170501, end: 20171219
  5. PREDNISONE. [Concomitant]
     Active Substance: PREDNISONE
  6. DOK [Concomitant]
     Active Substance: DOCUSATE SODIUM
  7. CITALOPRAM [Concomitant]
     Active Substance: CITALOPRAM HYDROBROMIDE
  8. ONDANSETRON [Concomitant]
     Active Substance: ONDANSETRON
  9. ATORVASTATIN [Concomitant]
     Active Substance: ATORVASTATIN
  10. ALLOPURINOL. [Concomitant]
     Active Substance: ALLOPURINOL
  11. FAMOTIDINE. [Concomitant]
     Active Substance: FAMOTIDINE

REACTIONS (9)
  - Memory impairment [None]
  - Hallucination [None]
  - Heart rate decreased [None]
  - Insomnia [None]
  - Contraindicated drug prescribed [None]
  - Contraindicated product administered [None]
  - Coordination abnormal [None]
  - Brain injury [None]
  - Dizziness [None]
